FAERS Safety Report 10769582 (Version 1)
Quarter: 2015Q1

REPORT INFORMATION
  Report Type: Spontaneous
  Country: US (occurrence: US)
  Receive Date: 20150206
  Receipt Date: 20150206
  Transmission Date: 20150721
  Serious: Yes (Death)
  Sender: FDA-Public Use
  Company Number: US-PFIZER INC-2014162540

PATIENT
  Age: 81 Year
  Sex: Male

DRUGS (2)
  1. XALKORI [Suspect]
     Active Substance: CRIZOTINIB
     Indication: LUNG NEOPLASM MALIGNANT
     Dosage: 250 MG, 2X/DAY
     Dates: start: 201312
  2. XALKORI [Suspect]
     Active Substance: CRIZOTINIB
     Indication: MYELODYSPLASTIC SYNDROME

REACTIONS (1)
  - Death [Fatal]
